FAERS Safety Report 23655921 (Version 1)
Quarter: 2024Q1

REPORT INFORMATION
  Report Type: Spontaneous
  Country: JP (occurrence: JP)
  Receive Date: 20240321
  Receipt Date: 20240321
  Transmission Date: 20240410
  Serious: Yes (Life-Threatening, Hospitalization, Other)
  Sender: FDA-Public Use
  Company Number: JP-BRISTOL-MYERS SQUIBB COMPANY-2024-042009

PATIENT
  Age: 22 Year
  Sex: Male

DRUGS (1)
  1. ELIQUIS [Suspect]
     Active Substance: APIXABAN
     Indication: Jugular vein thrombosis

REACTIONS (3)
  - Traumatic haemothorax [Unknown]
  - Condition aggravated [Unknown]
  - Vascular pseudoaneurysm ruptured [Unknown]
